FAERS Safety Report 5483471-1 (Version None)
Quarter: 2007Q4

REPORT INFORMATION
  Report Type: 
  Country: None (occurrence: None)
  Receive Date: 20071009
  Receipt Date: 20070927
  Transmission Date: 20080405
  Serious: Yes (Hospitalization)
  Sender: FDA-Public Use
  Company Number: TPA2007A00122

PATIENT
  Age: 66 Year
  Sex: Female
  Weight: 65.7716 kg

DRUGS (5)
  1. ROZEREM [Suspect]
     Indication: INSOMNIA
     Dosage: 8 MG, QHS, PER ORAL; 8 MG, PER ORAL
     Route: 048
     Dates: start: 20070105, end: 20070105
  2. ROZEREM [Suspect]
     Indication: INSOMNIA
     Dosage: 8 MG, QHS, PER ORAL; 8 MG, PER ORAL
     Route: 048
     Dates: start: 20070116, end: 20070116
  3. ZYRTEC [Concomitant]
  4. PREMARIN [Concomitant]
  5. FLONASE NASAL SPRAY                  (FLUTICASONE PROPIONATE) [Concomitant]

REACTIONS (5)
  - COLON CANCER [None]
  - DRUG INEFFECTIVE [None]
  - INITIAL INSOMNIA [None]
  - MIDDLE INSOMNIA [None]
  - SLEEP DISORDER [None]
